FAERS Safety Report 8141140-3 (Version None)
Quarter: 2012Q1

REPORT INFORMATION
  Report Type: 
  Country: None (occurrence: None)
  Receive Date: 20120216
  Receipt Date: 20120211
  Transmission Date: 20120608
  Serious: Yes (Hospitalization)
  Sender: FDA-Public Use
  Company Number: US-BAYER-200829831NA

PATIENT
  Age: 37 Year
  Sex: Female
  Weight: 75 kg

DRUGS (15)
  1. ALBUTEROL [Concomitant]
     Indication: ASTHMA
  2. LEVOTHYROXINE SODIUM [Concomitant]
     Indication: PRODUCT USED FOR UNKNOWN INDICATION
     Dosage: FOR MORE THAN 10 YEARS
     Route: 065
     Dates: start: 20050101
  3. MULTI-VITAMIN [Concomitant]
     Indication: VITAMIN SUPPLEMENTATION
     Route: 048
  4. PROTONIX [Concomitant]
     Dosage: 40 MG, UNK
     Route: 065
     Dates: start: 20060801, end: 20071015
  5. IBUPROFEN (ADVIL) [Concomitant]
     Route: 065
  6. YASMIN [Suspect]
     Dosage: 1 DF (DAILY DOSE), QD, ORAL
     Route: 048
     Dates: start: 20051023, end: 20060216
  7. LUPRON [Concomitant]
     Indication: UTERINE LEIOMYOMA
     Dosage: FIRST DOSE
  8. ALBUTEROL [Concomitant]
  9. LUPRON [Concomitant]
     Dosage: SECOND DOSE
  10. SYNTHROID [Concomitant]
     Indication: PRODUCT USED FOR UNKNOWN INDICATION
  11. ADVAIR DISKUS 100/50 [Concomitant]
  12. PROCRIT [Concomitant]
  13. ADVAIR DISKUS 100/50 [Concomitant]
     Route: 065
     Dates: start: 20050425, end: 20060227
  14. ASCORBIC ACID [Concomitant]
     Indication: VITAMIN SUPPLEMENTATION
  15. LUPRON [Concomitant]
     Dosage: SECOND DOSE

REACTIONS (7)
  - DYSPNOEA [None]
  - PLEURITIC PAIN [None]
  - MUSCLE TIGHTNESS [None]
  - PAIN IN EXTREMITY [None]
  - NON-CARDIAC CHEST PAIN [None]
  - VENA CAVA THROMBOSIS [None]
  - PULMONARY EMBOLISM [None]
